FAERS Safety Report 4849569-3 (Version None)
Quarter: 2005Q4

REPORT INFORMATION
  Report Type: 
  Country: None (occurrence: None)
  Receive Date: 20051207
  Receipt Date: 20051125
  Transmission Date: 20060501
  Serious: Yes (Hospitalization)
  Sender: FDA-Public Use
  Company Number: 2005114309

PATIENT
  Age: 93 Year
  Sex: Male
  Weight: 75 kg

DRUGS (5)
  1. LYRICA [Suspect]
     Indication: NEURALGIA
     Dosage: 300 MG (300 MG, 1 IN 1 D), ORAL
     Route: 048
     Dates: start: 20050201, end: 20050724
  2. TRAMADOL HCL [Suspect]
     Indication: NEURALGIA
     Dosage: ORAL
     Route: 048
     Dates: start: 20050719
  3. MIRTAZAPINE [Suspect]
     Indication: DEPRESSION
     Dosage: ORAL
     Route: 048
     Dates: end: 20050724
  4. NEURONTIN [Concomitant]
  5. VOLTAREN [Concomitant]

REACTIONS (6)
  - AGITATION [None]
  - DELIRIUM [None]
  - HALLUCINATION, VISUAL [None]
  - LOSS OF CONSCIOUSNESS [None]
  - PERSECUTORY DELUSION [None]
  - URINARY TRACT INFECTION [None]
